FAERS Safety Report 25166662 (Version 1)
Quarter: 2025Q2

REPORT INFORMATION
  Report Type: Spontaneous
  Country: GB (occurrence: GB)
  Receive Date: 20250407
  Receipt Date: 20250407
  Transmission Date: 20250716
  Serious: Yes (Other)
  Sender: ORGANON
  Company Number: None

PATIENT
  Age: 82 Year
  Sex: Male
  Weight: 92 kg

DRUGS (5)
  1. FINASTERIDE [Suspect]
     Active Substance: FINASTERIDE
     Dosage: 5 MILLIGRAM, QD
     Dates: start: 20230224
  2. FOLIC ACID [Concomitant]
     Active Substance: FOLIC ACID
     Indication: Ill-defined disorder
     Dates: start: 20171121
  3. METHOTREXATE [Concomitant]
     Active Substance: METHOTREXATE
     Indication: Ill-defined disorder
     Dosage: 12.5MG (FIVE TABLETS) ONCE A WEEK ON A SATURDAY
     Dates: start: 20180815
  4. TAMSULOSIN HYDROCHLORIDE [Concomitant]
     Active Substance: TAMSULOSIN HYDROCHLORIDE
     Indication: Ill-defined disorder
     Dosage: TAKE ONE CAPSULE DAILY TO HELP BLADDER SYMPTOMS
     Dates: start: 20220511
  5. SULFASALAZINE [Concomitant]
     Active Substance: SULFASALAZINE
     Indication: Ill-defined disorder
     Dosage: TAKE TWO TWICE A DAY
     Dates: start: 20230505

REACTIONS (5)
  - Affect lability [Unknown]
  - Personality change [Unknown]
  - Irritability [Unknown]
  - Anger [Unknown]
  - Tearfulness [Unknown]
